FAERS Safety Report 8762239 (Version 2)
Quarter: 2012Q4

REPORT INFORMATION
  Report Type: 
  Country: US (occurrence: US)
  Receive Date: 20120829
  Receipt Date: 20120921
  Transmission Date: 20130627
  Serious: Yes (Other)
  Sender: FDA-Public Use
  Company Number: US-PFIZER INC-2012208327

PATIENT
  Age: 59 Year
  Sex: Male
  Weight: 86.62 kg

DRUGS (8)
  1. LATANOPROST [Suspect]
     Indication: INTRAOCULAR PRESSURE TEST ABNORMAL
     Dosage: one drop of an unknown dose, daily
     Route: 047
     Dates: start: 20120531
  2. CIPROFLOXACIN [Suspect]
     Indication: CORNEAL ABRASION
     Dosage: UNK, 3x/day
     Dates: start: 20120705, end: 20120712
  3. TIMOLOL MALEATE [Suspect]
     Indication: INTRAOCULAR PRESSURE TEST ABNORMAL
     Dosage: UNK
  4. LIPITOR [Concomitant]
     Indication: BLOOD CHOLESTEROL ABNORMAL
     Dosage: 10 mg, 1x/day
     Route: 048
  5. BYSTOLIC [Concomitant]
     Indication: HYPERTENSION
     Dosage: 5 mg, 1x/day
  6. PRAZOSIN [Concomitant]
     Indication: HYPERTENSION
     Dosage: 1 mg, as needed
     Dates: start: 1983
  7. PRAZOSIN [Concomitant]
     Indication: STRESS
  8. REFRESH [Concomitant]
     Indication: DRY EYE
     Dosage: UNK, daily

REACTIONS (6)
  - Blindness transient [Recovering/Resolving]
  - Corneal abrasion [Recovered/Resolved]
  - Intraocular pressure increased [Unknown]
  - Intentional drug misuse [Unknown]
  - Drug ineffective [Unknown]
  - Drug ineffective [Unknown]
